FAERS Safety Report 19459552 (Version 2)
Quarter: 2021Q3

REPORT INFORMATION
  Report Type: Spontaneous
  Country: US (occurrence: US)
  Receive Date: 20210624
  Receipt Date: 20210721
  Transmission Date: 20211014
  Serious: No
  Sender: FDA-Public Use
  Company Number: US-LUPIN PHARMACEUTICALS INC.-2021-10117

PATIENT
  Age: 80 Year
  Sex: Female

DRUGS (1)
  1. ALBUTEROL SULFATE INHALATION AEROSOL, 90 MCG/ACTUATION [Suspect]
     Active Substance: ALBUTEROL SULFATE
     Indication: DYSPNOEA
     Dosage: UNK, BID
     Dates: start: 202105

REACTIONS (4)
  - Urine output increased [Unknown]
  - Toothache [Unknown]
  - Burning sensation [Unknown]
  - Constipation [Unknown]

NARRATIVE: CASE EVENT DATE: 202105
